FAERS Safety Report 6471032-7 (Version None)
Quarter: 2009Q4

REPORT INFORMATION
  Report Type: 
  Country: None (occurrence: None)
  Receive Date: 20091203
  Receipt Date: 20091119
  Transmission Date: 20100525
  Serious: Yes (Disabling)
  Sender: FDA-Public Use
  Company Number: NO-MYLANLABS-2009S1020009

PATIENT
  Age: 17 Year
  Sex: Female

DRUGS (1)
  1. FLUOXETINE [Suspect]
     Indication: OBSESSIVE-COMPULSIVE DISORDER
     Dosage: 10 MG AND 20 MG ALTERNATE EVERY SECOND DAY
     Route: 048
     Dates: start: 20081201, end: 20090108

REACTIONS (7)
  - ABDOMINAL PAIN UPPER [None]
  - ARTHRALGIA [None]
  - DYSKINESIA [None]
  - FATIGUE [None]
  - MUSCLE TWITCHING [None]
  - MYALGIA [None]
  - NAUSEA [None]
